FAERS Safety Report 4520870-6 (Version None)
Quarter: 2004Q4

REPORT INFORMATION
  Report Type: 
  Country: None (occurrence: None)
  Receive Date: 20041206
  Receipt Date: 20041206
  Transmission Date: 20050328
  Serious: Yes (Hospitalization)
  Sender: FDA-Public Use
  Company Number: None

PATIENT
  Age: 16 Year
  Sex: Female

DRUGS (1)
  1. OPTIRAY 300 [Suspect]
     Indication: COMPUTERISED TOMOGRAM
     Dosage: 60 ML IV HAND INJECTED
     Route: 042

REACTIONS (4)
  - DYSPHONIA [None]
  - DYSPNOEA [None]
  - THROAT IRRITATION [None]
  - URTICARIA [None]
